FAERS Safety Report 23418795 (Version 1)
Quarter: 2024Q1

REPORT INFORMATION
  Report Type: Spontaneous
  Country: US (occurrence: None)
  Receive Date: 20240118
  Receipt Date: 20240118
  Transmission Date: 20240410
  Serious: Yes (Other)
  Sender: FDA-Public Use
  Company Number: None

PATIENT
  Age: 28 Year
  Sex: Female
  Weight: 81 kg

DRUGS (2)
  1. PHENTERMINE [Suspect]
     Active Substance: PHENTERMINE
     Indication: Weight decreased
     Dosage: OTHER QUANTITY : .5 TABLET(S);?
     Route: 048
     Dates: start: 20240112, end: 20240117
  2. WOMEN^S VITAMIN [Concomitant]

REACTIONS (8)
  - Eye swelling [None]
  - Lip swelling [None]
  - Oral discomfort [None]
  - Lip pruritus [None]
  - Dysphagia [None]
  - Throat irritation [None]
  - Urticaria [None]
  - Adverse drug reaction [None]

NARRATIVE: CASE EVENT DATE: 20240118
